FAERS Safety Report 18505206 (Version 2)
Quarter: 2020Q4

REPORT INFORMATION
  Report Type: Spontaneous
  Country: US (occurrence: US)
  Receive Date: 20201116
  Receipt Date: 20201118
  Transmission Date: 20210114
  Serious: Yes (Other)
  Sender: FDA-Public Use
  Company Number: US-BEIGENE USA INC-BGN-2020-002350

PATIENT

DRUGS (2)
  1. BRUKINSA [Suspect]
     Active Substance: ZANUBRUTINIB
     Indication: PRODUCT USED FOR UNKNOWN INDICATION
     Dosage: FULL DOSE
  2. BRUKINSA [Suspect]
     Active Substance: ZANUBRUTINIB
     Dosage: REDUCED DOSE

REACTIONS (3)
  - Intestinal perforation [Unknown]
  - Febrile infection [Unknown]
  - Neutropenia [Unknown]
